FAERS Safety Report 20390707 (Version 5)
Quarter: 2022Q2

REPORT INFORMATION
  Report Type: Report from Study
  Country: US (occurrence: US)
  Receive Date: 20220128
  Receipt Date: 20220516
  Transmission Date: 20220721
  Serious: Yes (Other)
  Sender: FDA-Public Use
  Company Number: US-NOVARTISPH-NVSC2022US016837

PATIENT
  Sex: Female

DRUGS (2)
  1. KISQALI FEMARA CO-PACK [Suspect]
     Active Substance: LETROZOLE\RIBOCICLIB
     Indication: Breast cancer stage IV
     Dosage: UNK
     Route: 065
  2. KISQALI FEMARA CO-PACK [Suspect]
     Active Substance: LETROZOLE\RIBOCICLIB
     Indication: Breast cancer stage IV
     Dosage: UNK
     Route: 065

REACTIONS (8)
  - Pulmonary tuberculosis [Unknown]
  - Fracture [Unknown]
  - Liver injury [Unknown]
  - Road traffic accident [Unknown]
  - Gait disturbance [Unknown]
  - Lymphoedema [Unknown]
  - Limb injury [Unknown]
  - Dizziness [Unknown]
